FAERS Safety Report 25243534 (Version 1)
Quarter: 2025Q2

REPORT INFORMATION
  Report Type: Spontaneous
  Country: JP (occurrence: JP)
  Receive Date: 20250428
  Receipt Date: 20250428
  Transmission Date: 20250717
  Serious: Yes (Death, Life-Threatening, Other)
  Sender: BRISTOL-MYERS SQUIBB COMPANY
  Company Number: JP-BRISTOL-MYERS SQUIBB COMPANY-2025-061187

PATIENT
  Age: 70 Year

DRUGS (1)
  1. OPDIVO [Suspect]
     Active Substance: NIVOLUMAB
     Indication: Gastric cancer
     Route: 041

REACTIONS (1)
  - Skin disorder [Fatal]
